FAERS Safety Report 5079862-3 (Version None)
Quarter: 2006Q3

REPORT INFORMATION
  Report Type: 
  Country: None (occurrence: None)
  Receive Date: 20060815
  Receipt Date: 20060802
  Transmission Date: 20061208
  Serious: Yes (Hospitalization)
  Sender: FDA-Public Use
  Company Number: PHBS2006JP11804

PATIENT
  Age: 73 Year
  Sex: Male
  Weight: 53 kg

DRUGS (2)
  1. TEGRETOL [Suspect]
     Indication: TEMPORAL LOBE EPILEPSY
     Dosage: 600 MG/DAY
     Route: 048
     Dates: start: 20060529, end: 20060616
  2. DIOVAN [Concomitant]
     Indication: HYPERTENSION
     Dosage: 80 MG/DAY
     Route: 048

REACTIONS (3)
  - HAEMANGIOMA [None]
  - PLATELET COUNT DECREASED [None]
  - THROMBOCYTOPENIA [None]
